FAERS Safety Report 5927855-3 (Version None)
Quarter: 2008Q4

REPORT INFORMATION
  Report Type: 
  Country: None (occurrence: None)
  Receive Date: 20081023
  Receipt Date: 20081014
  Transmission Date: 20090506
  Serious: Yes (Hospitalization)
  Sender: FDA-Public Use
  Company Number: DE-AMGEN-US286195

PATIENT
  Sex: Female
  Weight: 61.3 kg

DRUGS (11)
  1. ENBREL [Suspect]
     Indication: JUVENILE ARTHRITIS
     Dosage: UNKNOWN
     Route: 058
     Dates: start: 20031001
  2. ENBREL [Suspect]
     Dosage: UNKNOWN
     Route: 058
     Dates: start: 20061017, end: 20080301
  3. ENBREL [Suspect]
     Route: 058
     Dates: start: 20080514, end: 20080527
  4. ENBREL [Suspect]
     Route: 058
     Dates: start: 20080721
  5. LANTAREL [Concomitant]
     Indication: JUVENILE ARTHRITIS
     Dosage: UNKNOWN
     Dates: start: 20030701
  6. LANTAREL [Concomitant]
     Dosage: UNKNOWN
     Route: 058
     Dates: start: 20061017, end: 20080301
  7. LANTAREL [Concomitant]
     Route: 058
     Dates: start: 20080601
  8. NAPROXEN [Concomitant]
     Indication: JUVENILE ARTHRITIS
     Dates: start: 20030501
  9. NAPROXEN [Concomitant]
     Route: 048
     Dates: start: 20060801, end: 20080301
  10. NAPROXEN [Concomitant]
     Dosage: WHEN NEEDED
     Route: 048
     Dates: start: 20080301, end: 20080501
  11. NAPROXEN [Concomitant]
     Route: 048
     Dates: start: 20080514

REACTIONS (2)
  - ARTHRITIS [None]
  - CONDITION AGGRAVATED [None]
